FAERS Safety Report 16110975 (Version 1)
Quarter: 2019Q1

REPORT INFORMATION
  Report Type: Spontaneous
  Country: US (occurrence: US)
  Receive Date: 20190220
  Receipt Date: 20190220
  Transmission Date: 20190418
  Serious: No
  Sender: FDA-Public Use
  Company Number: None

PATIENT
  Sex: Female

DRUGS (3)
  1. TYMLOS [Suspect]
     Active Substance: ABALOPARATIDE
     Indication: ARTHRALGIA
     Dosage: INJECT 80MG (1 PEN) SUBCUTANEOUSLY EVERY DAY  AS DIRECTED
     Route: 058
     Dates: start: 201812
  2. TYMLOS [Suspect]
     Active Substance: ABALOPARATIDE
     Indication: VITAMIN D DEFICIENCY
     Dosage: INJECT 80MG (1 PEN) SUBCUTANEOUSLY EVERY DAY  AS DIRECTED
     Route: 058
     Dates: start: 201812
  3. TYMLOS [Suspect]
     Active Substance: ABALOPARATIDE
     Indication: SENILE OSTEOPOROSIS
     Dosage: INJECT 80MG (1 PEN) SUBCUTANEOUSLY EVERY DAY  AS DIRECTED
     Route: 058
     Dates: start: 201812

REACTIONS (1)
  - Hypotension [None]
